FAERS Safety Report 15557286 (Version 1)
Quarter: 2018Q4

REPORT INFORMATION
  Report Type: Spontaneous
  Country: US (occurrence: US)
  Receive Date: 20181026
  Receipt Date: 20181026
  Transmission Date: 20190205
  Serious: No
  Sender: FDA-Public Use
  Company Number: US-B.I. PHARMACEUTICALS,INC./RIDGEFIELD-2018-BI-051532

PATIENT
  Age: 69 Year
  Sex: Male

DRUGS (4)
  1. SYMBICORT [Concomitant]
     Active Substance: BUDESONIDE\FORMOTEROL FUMARATE DIHYDRATE
     Indication: CHRONIC OBSTRUCTIVE PULMONARY DISEASE
     Dosage: 2 PUFFS TWICE DAILY;
     Route: 065
  2. SPIRIVA RESPIMAT [Suspect]
     Active Substance: TIOTROPIUM BROMIDE
     Indication: CHRONIC OBSTRUCTIVE PULMONARY DISEASE
     Dosage: FORMULATION: INHALATION SPRAY?ACTION(S) TAKEN WITH PRODUCT: DOSE NOT CHANGED
     Route: 055
     Dates: start: 201809
  3. DOXEPIN [Concomitant]
     Active Substance: DOXEPIN
     Indication: MENTAL DISORDER
     Route: 048
     Dates: start: 2008
  4. FLUPHENAZINE [Concomitant]
     Active Substance: FLUPHENAZINE
     Indication: MENTAL DISORDER
     Dosage: 1 TABLET DAILY
     Route: 048
     Dates: start: 2008

REACTIONS (3)
  - Dry mouth [Not Recovered/Not Resolved]
  - Oropharyngeal pain [Recovered/Resolved]
  - Secretion discharge [Not Recovered/Not Resolved]

NARRATIVE: CASE EVENT DATE: 201809
